FAERS Safety Report 6265517-6 (Version None)
Quarter: 2009Q3

REPORT INFORMATION
  Report Type: 
  Country: None (occurrence: None)
  Receive Date: 20090709
  Receipt Date: 20090709
  Transmission Date: 20100115
  Serious: Yes (Hospitalization)
  Sender: FDA-Public Use
  Company Number: None

PATIENT
  Age: 78 Year
  Sex: Male
  Weight: 90 kg

DRUGS (13)
  1. KEPPRA [Suspect]
     Indication: CONVULSION PROPHYLAXIS
     Dosage: 1000 MG BID IV
     Route: 042
     Dates: start: 20090705, end: 20090709
  2. WARFARIN SODIUM [Suspect]
  3. ASCORBIC ACID [Concomitant]
  4. CALCIUM CARBONATE [Concomitant]
  5. LISINOPRIL [Concomitant]
  6. METOPROLOL [Concomitant]
  7. PANTOPRAZOLE SODIUM [Concomitant]
  8. FOLATE [Concomitant]
  9. PAROXETINE HCL [Concomitant]
  10. ROSUVASTATIN CALCIUM [Concomitant]
  11. LABETALOL HCL [Concomitant]
  12. HYDRALAZINE HCL [Concomitant]
  13. NICARDIPINE HYDROCHLORIDE [Concomitant]

REACTIONS (1)
  - EPILEPSY [None]
